FAERS Safety Report 16121654 (Version 2)
Quarter: 2020Q1

REPORT INFORMATION
  Report Type: Spontaneous
  Country: TR (occurrence: TR)
  Receive Date: 20190327
  Receipt Date: 20200124
  Transmission Date: 20200409
  Serious: Yes (Hospitalization)
  Sender: FDA-Public Use
  Company Number: TR-ABBVIE-19P-161-2721770-00

PATIENT
  Age: 76 Year
  Sex: Female

DRUGS (4)
  1. FLUDEX-SR [Concomitant]
     Active Substance: INDAPAMIDE
     Indication: HYPERTENSION
  2. KINZY [Concomitant]
     Indication: POLLAKIURIA
  3. TARKA [Suspect]
     Active Substance: TRANDOLAPRIL\VERAPAMIL HYDROCHLORIDE
     Indication: HYPERTENSION
     Dosage: DAILY DOSE UNKNOWN, ?FORM STRENGTH: 180/2 MILLIGRAM
     Route: 048
     Dates: start: 2014, end: 20190325
  4. ASPIRIN. [Concomitant]
     Active Substance: ASPIRIN
     Indication: PRODUCT USED FOR UNKNOWN INDICATION

REACTIONS (2)
  - Heart rate decreased [Recovering/Resolving]
  - Atrioventricular block [Recovering/Resolving]

NARRATIVE: CASE EVENT DATE: 20190325
